FAERS Safety Report 5907343-0 (Version None)
Quarter: 2008Q4

REPORT INFORMATION
  Report Type: 
  Country: None (occurrence: None)
  Receive Date: 20081003
  Receipt Date: 20080925
  Transmission Date: 20090506
  Serious: Yes (Hospitalization)
  Sender: FDA-Public Use
  Company Number: HU-WATSON-2008-05748

PATIENT
  Age: 64 Year
  Sex: Female

DRUGS (2)
  1. METHYLPREDNISOLONE ACETATE [Suspect]
     Indication: RHEUMATOID ARTHRITIS
     Dosage: 8 MG, DAILY
     Route: 065
     Dates: start: 19960101, end: 20051001
  2. METHOTREXATE [Concomitant]
     Indication: RHEUMATOID ARTHRITIS
     Dosage: 7.5 MG, 1/WEEK
     Dates: start: 19960101

REACTIONS (2)
  - AUTOIMMUNE THROMBOCYTOPENIA [None]
  - GASTRIC HAEMORRHAGE [None]
